FAERS Safety Report 6753467-8 (Version None)
Quarter: 2010Q2

REPORT INFORMATION
  Report Type: 
  Country: None (occurrence: None)
  Receive Date: 20100603
  Receipt Date: 20100525
  Transmission Date: 20101027
  Serious: Yes (Other)
  Sender: FDA-Public Use
  Company Number: US-BAXTER-2010BH014107

PATIENT
  Sex: Male

DRUGS (1)
  1. PHENERGAN [Suspect]
     Indication: DRUG USE FOR UNKNOWN INDICATION
     Route: 042
     Dates: start: 20051210

REACTIONS (13)
  - ANGIOPATHY [None]
  - BURNING SENSATION [None]
  - DEEP VEIN THROMBOSIS [None]
  - DEPRESSION [None]
  - INCORRECT DRUG ADMINISTRATION RATE [None]
  - INFERTILITY [None]
  - INJECTION SITE PAIN [None]
  - LOSS OF CONSCIOUSNESS [None]
  - OEDEMA PERIPHERAL [None]
  - PAIN IN EXTREMITY [None]
  - PULMONARY EMBOLISM [None]
  - TOTAL LUNG CAPACITY DECREASED [None]
  - TREMOR [None]
